FAERS Safety Report 15369527 (Version 3)
Quarter: 2019Q1

REPORT INFORMATION
  Report Type: Spontaneous
  Country: US (occurrence: US)
  Receive Date: 20180911
  Receipt Date: 20190312
  Transmission Date: 20190417
  Serious: No
  Sender: FDA-Public Use
  Company Number: US-PFIZER INC-2018364554

PATIENT
  Age: 55 Year
  Sex: Female
  Weight: 65.76 kg

DRUGS (1)
  1. IBRANCE [Suspect]
     Active Substance: PALBOCICLIB
     Indication: BREAST CANCER FEMALE
     Dosage: 125 MG, CYCLIC(1 CAPSULE 1-21 DAYS)
     Route: 048
     Dates: start: 20180711

REACTIONS (2)
  - Oral pain [Recovered/Resolved]
  - Alopecia [Recovered/Resolved]
